FAERS Safety Report 21361662 (Version 1)
Quarter: 2022Q3

REPORT INFORMATION
  Report Type: Spontaneous
  Country: US (occurrence: US)
  Receive Date: 20220921
  Receipt Date: 20220921
  Transmission Date: 20221026
  Serious: Yes (Other)
  Sender: FDA-Public Use
  Company Number: US-BRISTOL-MYERS SQUIBB COMPANY-2022-109564

PATIENT
  Age: 60 Year
  Sex: Female

DRUGS (14)
  1. REVLIMID [Suspect]
     Active Substance: LENALIDOMIDE
     Indication: Plasma cell myeloma
     Dosage: QD X 21 DAYS
     Route: 048
     Dates: start: 20211229
  2. ASPIRIN [Concomitant]
     Active Substance: ASPIRIN
     Dosage: 81MG EC LOW DOSE TABLETS
  3. BUSPIRONE [Concomitant]
     Active Substance: BUSPIRONE HYDROCHLORIDE
  4. CYCLOBENZAPRINE [Concomitant]
     Active Substance: CYCLOBENZAPRINE
  5. PANTOPRAZOLE [Concomitant]
     Active Substance: PANTOPRAZOLE
  6. ALEVE [Concomitant]
     Active Substance: NAPROXEN SODIUM
     Dosage: 220MG CAPLETS
  7. BORTEZOMIB [Concomitant]
     Active Substance: BORTEZOMIB
     Dosage: 3.5MG INJ, 1 VIAL
  8. DARZALEX [Concomitant]
     Active Substance: DARATUMUMAB
     Dosage: 100MG/5ML INJ, 1 VIAL
  9. ALLEGRA ALLERGY [Concomitant]
     Active Substance: FEXOFENADINE HYDROCHLORIDE
     Dosage: 180MG TABS(OTC) 5S
  10. MAGNESIUM [Concomitant]
     Active Substance: MAGNESIUM
  11. TYLENOL [Concomitant]
     Active Substance: ACETAMINOPHEN
  12. VITAMIN B12 [Concomitant]
     Active Substance: CYANOCOBALAMIN
     Dosage: 2500MCG SUBL TABS 50
  13. VITAMIN D3 [Concomitant]
     Active Substance: CHOLECALCIFEROL
     Dosage: 5,000 IU (CHOLE) TAB
  14. ZINC [Concomitant]
     Active Substance: ZINC

REACTIONS (2)
  - Neuropathy peripheral [Unknown]
  - Tinnitus [Unknown]

NARRATIVE: CASE EVENT DATE: 20220601
